FAERS Safety Report 9033612 (Version 3)
Quarter: 2013Q2

REPORT INFORMATION
  Report Type: Spontaneous
  Country: US (occurrence: US)
  Receive Date: 20130128
  Receipt Date: 20130422
  Transmission Date: 20140414
  Serious: Yes (Hospitalization)
  Sender: FDA-Public Use
  Company Number: US-BAYER-2013-010528

PATIENT
  Age: 33 Year
  Sex: Female
  Weight: 72.56 kg

DRUGS (10)
  1. YASMIN [Suspect]
     Dosage: UNK
     Dates: start: 20000101, end: 201102
  2. OCELLA [Suspect]
  3. LEVOTHROID [Concomitant]
  4. MOTRIN [Concomitant]
     Dosage: UNK
     Dates: start: 20101218
  5. ZITHROMAX Z-PAK [Concomitant]
     Dosage: 250 MG, UNK
     Dates: start: 20101111
  6. PREDNISOLONE [Concomitant]
     Dosage: 5 MG, UNK
  7. LEVOTHYROXINE [Concomitant]
     Dosage: 50 MCG, QD [DAILY]
  8. LEVOTHYROXINE [Concomitant]
     Dosage: 125 MCG, QD [DAILY]
  9. TRAMADOL [Concomitant]
  10. VICODIN [Concomitant]
     Indication: PAIN

REACTIONS (9)
  - Deep vein thrombosis [None]
  - Pulmonary embolism [None]
  - Injury [None]
  - Pain [None]
  - General physical health deterioration [None]
  - Anxiety [None]
  - Emotional distress [None]
  - Anhedonia [None]
  - Pain [None]
